FAERS Safety Report 5046984-2 (Version None)
Quarter: 2006Q2

REPORT INFORMATION
  Report Type: 
  Country: None (occurrence: None)
  Receive Date: 20060630
  Receipt Date: 20060619
  Transmission Date: 20061013
  Serious: Yes (Other)
  Sender: FDA-Public Use
  Company Number: 2006079402

PATIENT
  Age: 63 Year
  Sex: Male

DRUGS (1)
  1. LYRICA [Suspect]
     Dosage: 150 MG (150 MG, 1 D), ORAL
     Route: 048

REACTIONS (3)
  - DYSPNOEA [None]
  - HYPOAESTHESIA [None]
  - PARALYSIS [None]
